FAERS Safety Report 6325302-3 (Version None)
Quarter: 2009Q3

REPORT INFORMATION
  Report Type: 
  Country: None (occurrence: None)
  Receive Date: 20090820
  Receipt Date: 20090805
  Transmission Date: 20100115
  Serious: Yes (Other)
  Sender: FDA-Public Use
  Company Number: DSM-2009-01091

PATIENT
  Age: 74 Year
  Sex: Male
  Weight: 85 kg

DRUGS (2)
  1. SEVIKAR (OLMESARTAN MEDOXOMIL/AMLODIPINE EESILATE) TABLET) [Suspect]
     Indication: HYPERTENSION
     Dosage: 20/5MG (1 IN 1 D), ORAL
     Route: 048
     Dates: start: 20090626, end: 20090709
  2. INSULIN (INSULIN) [Concomitant]

REACTIONS (2)
  - BLOOD GLUCOSE DECREASED [None]
  - OEDEMA [None]
